FAERS Safety Report 10435935 (Version 1)
Quarter: 2014Q3

REPORT INFORMATION
  Report Type: Report from Study
  Country: AR (occurrence: AR)
  Receive Date: 20140908
  Receipt Date: 20140908
  Transmission Date: 20150326
  Serious: Yes (Death)
  Sender: FDA-Public Use
  Company Number: AR-BAYER-2014-130963

PATIENT
  Age: 57 Year
  Sex: Male

DRUGS (1)
  1. BETAFERON [Suspect]
     Active Substance: INTERFERON BETA-1B

REACTIONS (1)
  - Cardio-respiratory arrest [Fatal]
